FAERS Safety Report 7971315-5 (Version None)
Quarter: 2011Q4

REPORT INFORMATION
  Report Type: 
  Country: None (occurrence: None)
  Receive Date: 20111212
  Receipt Date: 20111202
  Transmission Date: 20120403
  Serious: Yes (Hospitalization, Other)
  Sender: FDA-Public Use
  Company Number: PHHY2011JP106002

PATIENT
  Age: 5 Year
  Sex: Male

DRUGS (8)
  1. BASILIXIMAB [Suspect]
     Indication: RENAL AND LIVER TRANSPLANT
     Dosage: 5 MG, UNK
  2. PREDNISOLONE [Concomitant]
     Dosage: 0.5 MG/KG, UNK
  3. METHYLPREDNISOLONE [Concomitant]
     Dosage: 180 MG, UNK
  4. IMMUNE GLOBULIN INTRAVENOUS (HUMAN) [Concomitant]
     Dosage: 100 MG/KG, FOR 3 DAYS.
  5. MYCOPHENOLATE MOFETIL [Concomitant]
     Indication: RENAL AND LIVER TRANSPLANT
     Dosage: UNK UKN, UNK
  6. TACROLIMUS [Concomitant]
     Indication: RENAL AND LIVER TRANSPLANT
     Dosage: UNK UKN, UNK
  7. METHYLPREDNISOLONE [Concomitant]
     Indication: RENAL AND LIVER TRANSPLANT
     Dosage: 10 MG/KG, UNK
  8. PREDNISOLONE [Concomitant]
     Indication: RENAL AND LIVER TRANSPLANT
     Dosage: 1 MG/KG, PER DAY

REACTIONS (4)
  - THROMBOCYTOPENIA [None]
  - EVANS SYNDROME [None]
  - ANAEMIA HAEMOLYTIC AUTOIMMUNE [None]
  - GRAFT VERSUS HOST DISEASE [None]
